FAERS Safety Report 11646877 (Version 1)
Quarter: 2015Q4

REPORT INFORMATION
  Report Type: Spontaneous
  Country: US (occurrence: US)
  Receive Date: 20151020
  Receipt Date: 20151020
  Transmission Date: 20160304
  Serious: No
  Sender: FDA-Public Use
  Company Number: US-ROCHE-ITM201503IM011274

PATIENT
  Sex: Female
  Weight: 56.75 kg

DRUGS (3)
  1. ASPIRIN. [Concomitant]
     Active Substance: ASPIRIN
  2. ESBRIET [Suspect]
     Active Substance: PIRFENIDONE
     Indication: IDIOPATHIC PULMONARY FIBROSIS
     Route: 048
     Dates: start: 20150309
  3. ESBRIET [Suspect]
     Active Substance: PIRFENIDONE
     Dosage: 900 MG DAILY
     Route: 048

REACTIONS (8)
  - Gastrooesophageal reflux disease [Unknown]
  - Cough [Unknown]
  - Pruritus [Unknown]
  - Hepatic enzyme increased [Unknown]
  - Urticaria [Recovering/Resolving]
  - Nausea [Unknown]
  - Photosensitivity reaction [Unknown]
  - Nasopharyngitis [Unknown]
